FAERS Safety Report 7706164-6 (Version None)
Quarter: 2011Q3

REPORT INFORMATION
  Report Type: 
  Country: None (occurrence: None)
  Receive Date: 20110818
  Receipt Date: 20110808
  Transmission Date: 20111222
  Serious: Yes (Hospitalization, Disabling)
  Sender: FDA-Public Use
  Company Number: TPG2011A02252

PATIENT
  Age: 72 Year
  Sex: Female

DRUGS (4)
  1. PIOGLITAZONE HYDROCHLORIDE AND METFORMIN HYDROCHLORIDE [Suspect]
     Indication: TYPE 2 DIABETES MELLITUS
     Dosage: PER ORAL
     Route: 048
     Dates: start: 20070130, end: 20100905
  2. INSULIN (INSULIN) [Concomitant]
  3. PANTOPRAZOLE SODIUM [Concomitant]
  4. ACTOS [Suspect]
     Indication: TYPE 2 DIABETES MELLITUS
     Dosage: 45 MG (45 MG,1-0-0) 1) PER ORAL
     Route: 048
     Dates: start: 20060411, end: 20070629

REACTIONS (3)
  - METASTATIC CARCINOMA OF THE BLADDER [None]
  - CYSTITIS [None]
  - METASTASES TO RETROPERITONEUM [None]
